FAERS Safety Report 12319482 (Version 3)
Quarter: 2016Q2

REPORT INFORMATION
  Report Type: Report from Study
  Country: LT (occurrence: LT)
  Receive Date: 20160429
  Receipt Date: 20160616
  Transmission Date: 20160815
  Serious: Yes (Other)
  Sender: FDA-Public Use
  Company Number: LT-SA-2016SA084301

PATIENT
  Age: 66 Year
  Sex: Female

DRUGS (3)
  1. L-THYROXIN [Concomitant]
     Active Substance: LEVOTHYROXINE SODIUM
     Indication: HYPOTHYROIDISM
     Route: 048
  2. NEBILET HCT [Concomitant]
     Indication: ESSENTIAL HYPERTENSION
     Route: 048
  3. CAPRELSA [Suspect]
     Active Substance: VANDETANIB
     Indication: MEDULLARY THYROID CANCER
     Route: 048
     Dates: start: 20140915

REACTIONS (1)
  - Electrocardiogram QT prolonged [Unknown]
